FAERS Safety Report 25388644 (Version 1)
Quarter: 2025Q2

REPORT INFORMATION
  Report Type: Spontaneous
  Country: US (occurrence: US)
  Receive Date: 20250603
  Receipt Date: 20250603
  Transmission Date: 20250717
  Serious: No
  Sender: ROCHE
  Company Number: US-ROCHE-10000298127

PATIENT
  Sex: Female

DRUGS (10)
  1. XOLAIR [Suspect]
     Active Substance: OMALIZUMAB
     Indication: Neurodermatitis
     Dosage: 150 MG ML
     Route: 058
  2. XOLAIR [Suspect]
     Active Substance: OMALIZUMAB
  3. Adderall Tab 30 mg [Concomitant]
     Route: 048
  4. Allegra alle tab 180mg [Concomitant]
     Route: 048
  5. Atorvastatin pow [Concomitant]
  6. CELEBREX [Concomitant]
     Active Substance: CELECOXIB
     Route: 065
  7. Diltiazem Hc Pow [Concomitant]
  8. Omeprazole Pow [Concomitant]
  9. Vitamin D3 Pow [Concomitant]
  10. VALSARTAN [Concomitant]
     Active Substance: VALSARTAN
     Route: 048

REACTIONS (2)
  - Off label use [Unknown]
  - No adverse event [Unknown]
